FAERS Safety Report 5659531-9 (Version None)
Quarter: 2008Q1

REPORT INFORMATION
  Report Type: 
  Country: None (occurrence: None)
  Receive Date: 20080311
  Receipt Date: 20080303
  Transmission Date: 20080703
  Serious: Yes (Life-Threatening)
  Sender: FDA-Public Use
  Company Number: JP-SANOFI-SYNTHELABO-A01200802473

PATIENT
  Sex: Male

DRUGS (8)
  1. LAC-B [Concomitant]
     Dates: start: 20080104
  2. MARZULENE [Concomitant]
     Dates: start: 20071214
  3. RHYTHMY [Concomitant]
     Dates: start: 20071012
  4. ZANTAC [Concomitant]
     Dates: start: 20070427
  5. CALCIUM LEVOFOLINATE [Suspect]
     Route: 042
     Dates: start: 20080118, end: 20080118
  6. FLUOROURACIL [Suspect]
     Route: 042
     Dates: start: 20080118, end: 20080118
  7. BEVACIZUMAB [Suspect]
     Route: 042
     Dates: start: 20080118, end: 20080118
  8. ELPLAT [Suspect]
     Indication: COLON CANCER METASTATIC
     Route: 042
     Dates: start: 20080118, end: 20080118

REACTIONS (1)
  - SMALL INTESTINAL PERFORATION [None]
